FAERS Safety Report 12828906 (Version 1)
Quarter: 2016Q4

REPORT INFORMATION
  Report Type: Spontaneous
  Country: US (occurrence: US)
  Receive Date: 20161007
  Receipt Date: 20161007
  Transmission Date: 20170207
  Serious: No
  Sender: FDA-Public Use
  Company Number: US-SA-2016SA026500

PATIENT
  Age: 62 Year
  Sex: Female

DRUGS (1)
  1. AUBAGIO [Suspect]
     Active Substance: TERIFLUNOMIDE
     Indication: MULTIPLE SCLEROSIS
     Route: 048
     Dates: start: 20150921, end: 20151215

REACTIONS (5)
  - Fatigue [Unknown]
  - Herpes zoster [Unknown]
  - Fall [Unknown]
  - Head injury [Unknown]
  - Rash [Unknown]

NARRATIVE: CASE EVENT DATE: 201512
